FAERS Safety Report 7090144-0 (Version None)
Quarter: 2010Q4

REPORT INFORMATION
  Report Type: 
  Country: None (occurrence: None)
  Receive Date: 20101109
  Receipt Date: 20101026
  Transmission Date: 20110411
  Serious: Yes (Other)
  Sender: FDA-Public Use
  Company Number: NL-PAR PHARMACEUTICAL, INC-2010SCPR002269

PATIENT

DRUGS (1)
  1. DEXAMETHASONE [Suspect]
     Indication: PRODUCT USED FOR UNKNOWN INDICATION
     Dosage: UNK
     Route: 065

REACTIONS (2)
  - CUSHING'S SYNDROME [None]
  - DRUG DISPENSING ERROR [None]
